FAERS Safety Report 6269067-2 (Version None)
Quarter: 2009Q3

REPORT INFORMATION
  Report Type: 
  Country: None (occurrence: None)
  Receive Date: 20090714
  Receipt Date: 20090714
  Transmission Date: 20100115
  Serious: No
  Sender: FDA-Public Use
  Company Number: None

PATIENT
  Age: 67 Year
  Sex: Female
  Weight: 58.9676 kg

DRUGS (1)
  1. EFFEXOR [Suspect]
     Indication: ANXIETY
     Dosage: 37.5MG 1XDAILY PO
     Route: 048
     Dates: start: 20090703, end: 20090703

REACTIONS (3)
  - BURNING SENSATION [None]
  - MALAISE [None]
  - VOMITING [None]
